FAERS Safety Report 15968486 (Version 1)
Quarter: 2019Q1

REPORT INFORMATION
  Report Type: Spontaneous
  Country: CA (occurrence: CA)
  Receive Date: 20190215
  Receipt Date: 20190215
  Transmission Date: 20190418
  Serious: Yes (Hospitalization)
  Sender: FDA-Public Use
  Company Number: CA-ASTRAZENECA-2019SE26054

PATIENT
  Age: 37 Year
  Sex: Female

DRUGS (6)
  1. ATROVENT [Suspect]
     Active Substance: IPRATROPIUM BROMIDE
     Route: 055
  2. SALBUTAMOL SULFATE [Suspect]
     Active Substance: ALBUTEROL SULFATE
     Route: 065
  3. ALVESCO [Suspect]
     Active Substance: CICLESONIDE
     Route: 055
  4. BUDESONIDE FORMOTEROL FUMARATE [Suspect]
     Active Substance: BUDESONIDE\FORMOTEROL FUMARATE
     Route: 055
  5. SALBUTAMOL SULFATE [Suspect]
     Active Substance: ALBUTEROL SULFATE
     Route: 065
  6. SPIRIVA [Suspect]
     Active Substance: TIOTROPIUM BROMIDE MONOHYDRATE
     Route: 055

REACTIONS (9)
  - Blood count abnormal [Unknown]
  - Wheezing [Unknown]
  - Productive cough [Unknown]
  - Dyspepsia [Unknown]
  - Cough [Unknown]
  - Asthma [Unknown]
  - Middle insomnia [Unknown]
  - Obstructive airways disorder [Unknown]
  - Dyspnoea [Unknown]
